FAERS Safety Report 4365781-4 (Version None)
Quarter: 2004Q2

REPORT INFORMATION
  Report Type: 
  Country: None (occurrence: None)
  Receive Date: 20040521
  Receipt Date: 20040510
  Transmission Date: 20050107
  Serious: Yes (Other)
  Sender: FDA-Public Use
  Company Number: 2004207855GB

PATIENT
  Age: 61 Year
  Sex: Female
  Weight: 92 kg

DRUGS (2)
  1. CELEBREX [Suspect]
     Indication: OSTEOARTHRITIS
     Dosage: 200 MG, QD, ORAL
     Route: 048
     Dates: end: 20040329
  2. SOLPADOL (CODEINE PHOSPHATE, PARACETAMOL) [Suspect]
     Dosage: PRN

REACTIONS (8)
  - ATRIAL FIBRILLATION [None]
  - DIZZINESS [None]
  - DRUG WITHDRAWAL SYNDROME [None]
  - HEADACHE [None]
  - LABYRINTHITIS [None]
  - NASAL CONGESTION [None]
  - VERTIGO [None]
  - VOMITING [None]
